FAERS Safety Report 6358246-1 (Version None)
Quarter: 2009Q3

REPORT INFORMATION
  Report Type: 
  Country: None (occurrence: None)
  Receive Date: 20090911
  Receipt Date: 20090828
  Transmission Date: 20100115
  Serious: Yes (Hospitalization)
  Sender: FDA-Public Use
  Company Number: IDA-00255

PATIENT
  Sex: Male

DRUGS (2)
  1. PROPRANOLOL [Suspect]
     Dosage: 80 MG DAILY
     Route: 064
  2. SUMATRIPTAN SUCCINATE [Concomitant]

REACTIONS (2)
  - HYPOGLYCAEMIA NEONATAL [None]
  - MATERNAL DRUGS AFFECTING FOETUS [None]
